FAERS Safety Report 7428909-5 (Version None)
Quarter: 2011Q2

REPORT INFORMATION
  Report Type: 
  Country: None (occurrence: None)
  Receive Date: 20110412
  Receipt Date: 20110329
  Transmission Date: 20111010
  Serious: Yes (Disabling)
  Sender: FDA-Public Use
  Company Number: JP-2011-10364

PATIENT
  Age: 59 Year
  Sex: Female
  Weight: 41 kg

DRUGS (3)
  1. MEXILETINE HYDROCHLORIDE [Concomitant]
  2. PLETAL [Suspect]
     Indication: CEREBRAL INFARCTION
     Dosage: 50MG MILLIGRAMS, QPM, ORAL
     Route: 048
  3. VERAPAMIL HYDROCHLORIDE [Concomitant]

REACTIONS (1)
  - ALOPECIA TOTALIS [None]
